FAERS Safety Report 17855630 (Version 1)
Quarter: 2020Q2

REPORT INFORMATION
  Report Type: Spontaneous
  Country: US (occurrence: US)
  Receive Date: 20200603
  Receipt Date: 20200603
  Transmission Date: 20200714
  Serious: Yes (Death)
  Sender: FDA-Public Use
  Company Number: None

PATIENT
  Age: 68 Year
  Sex: Male
  Weight: 76.46 kg

DRUGS (15)
  1. BASAGLAR [Concomitant]
     Active Substance: INSULIN GLARGINE
  2. DLTIAZEM [Concomitant]
  3. LEVETIRACETAM. [Concomitant]
     Active Substance: LEVETIRACETAM
  4. PRILOSEC [Concomitant]
     Active Substance: OMEPRAZOLE MAGNESIUM
  5. HUMALOG [Concomitant]
     Active Substance: INSULIN LISPRO
  6. ASPIRIN. [Concomitant]
     Active Substance: ASPIRIN
  7. FENOFIBRATE. [Concomitant]
     Active Substance: FENOFIBRATE
  8. PIOGLITAZONE. [Concomitant]
     Active Substance: PIOGLITAZONE
  9. SPIRONOLACTONE. [Concomitant]
     Active Substance: SPIRONOLACTONE
  10. PRAVASTATIN. [Concomitant]
     Active Substance: PRAVASTATIN
  11. TRULICITY [Concomitant]
     Active Substance: DULAGLUTIDE
  12. DEXAMETHASONE. [Concomitant]
     Active Substance: DEXAMETHASONE
  13. TEMOZOLOMIDE. [Suspect]
     Active Substance: TEMOZOLOMIDE
     Indication: BRAIN NEOPLASM MALIGNANT
     Dosage: ?          OTHER FREQUENCY:DAILY X 21 DAYS;?
     Route: 048
     Dates: start: 20200520
  14. FARXIGA [Concomitant]
     Active Substance: DAPAGLIFLOZIN PROPANEDIOL
  15. TRADJENTA [Concomitant]
     Active Substance: LINAGLIPTIN

REACTIONS (1)
  - Death [None]

NARRATIVE: CASE EVENT DATE: 20200603
